FAERS Safety Report 24660525 (Version 3)
Quarter: 2025Q1

REPORT INFORMATION
  Report Type: Spontaneous
  Country: US (occurrence: US)
  Receive Date: 20241125
  Receipt Date: 20250310
  Transmission Date: 20250409
  Serious: Yes (Hospitalization)
  Sender: BRISTOL-MYERS SQUIBB COMPANY
  Company Number: US-BRISTOL-MYERS SQUIBB COMPANY-2024-180400

PATIENT
  Age: 76 Year
  Sex: Female

DRUGS (4)
  1. IDHIFA [Suspect]
     Active Substance: ENASIDENIB MESYLATE
     Indication: Acute myeloid leukaemia
     Dosage: DAILY
     Route: 048
     Dates: start: 20241029
  2. IDHIFA [Suspect]
     Active Substance: ENASIDENIB MESYLATE
     Dates: start: 20241104
  3. VENCLEXTA [Concomitant]
     Active Substance: VENETOCLAX
     Indication: Acute myeloid leukaemia
     Route: 048
     Dates: start: 202410
  4. VENCLEXTA [Concomitant]
     Active Substance: VENETOCLAX
     Route: 048
     Dates: start: 20241104

REACTIONS (7)
  - White blood cell count decreased [Unknown]
  - Pruritus [Recovering/Resolving]
  - Fluid retention [Unknown]
  - Blood pressure increased [Unknown]
  - Illness [Unknown]
  - Arthropathy [Unknown]
  - Anaemia [Not Recovered/Not Resolved]

NARRATIVE: CASE EVENT DATE: 20241101
